FAERS Safety Report 4365690-0 (Version None)
Quarter: 2004Q2

REPORT INFORMATION
  Report Type: 
  Country: None (occurrence: None)
  Receive Date: 20040520
  Receipt Date: 20040506
  Transmission Date: 20050107
  Serious: Yes (Disabling, Other)
  Sender: FDA-Public Use
  Company Number: 2004US000426

PATIENT
  Age: 27 Month
  Sex: Female

DRUGS (23)
  1. AMBISOME [Suspect]
     Dosage: MG, UID/QD, INTRAVENOUS :40 MG, UID/QD, INTRAVENOUS : 40 MG UID/QD, INTRAVENOUS
     Route: 042
     Dates: start: 20030623, end: 20030625
  2. AMBISOME [Suspect]
     Dosage: MG, UID/QD, INTRAVENOUS :40 MG, UID/QD, INTRAVENOUS : 40 MG UID/QD, INTRAVENOUS
     Route: 042
     Dates: start: 20030623, end: 20030707
  3. AMBISOME [Suspect]
     Dosage: MG, UID/QD, INTRAVENOUS :40 MG, UID/QD, INTRAVENOUS : 40 MG UID/QD, INTRAVENOUS
     Route: 042
     Dates: start: 20030704, end: 20040707
  4. CYTARABINE [Suspect]
     Indication: ACUTE MYELOID LEUKAEMIA
     Dosage: 34 MG, UID/QD, INTRAVENOUS
     Route: 042
     Dates: start: 20030620, end: 20030620
  5. CYTARABINE [Suspect]
     Indication: ACUTE MYELOID LEUKAEMIA
     Dosage: 34 MG, UID/QD, INTRAVENOUS
     Route: 042
     Dates: start: 20030621, end: 20030625
  6. FILGRASTIM(FILGRASTIM) INJECTION [Suspect]
     Dosage: 110 UG , UID/QD , INTRAVENOUS :  70 UG, UID/QD, INTRAVENOUS
     Route: 042
     Dates: start: 20030621, end: 20030625
  7. FILGRASTIM(FILGRASTIM) INJECTION [Suspect]
     Dosage: 110 UG , UID/QD , INTRAVENOUS :  70 UG, UID/QD, INTRAVENOUS
     Route: 042
     Dates: start: 20030705, end: 20030707
  8. FLUDARA [Suspect]
     Indication: ACUTE MYELOID LEUKAEMIA
     Dosage: 17 MG, UID/QD, INTRAVENOUS
     Route: 042
     Dates: start: 20030621, end: 20030625
  9. BACTRIM [Suspect]
     Dosage: 0.50 DF,3X WEEKLY, ORAL
     Route: 048
     Dates: start: 20030620, end: 20030707
  10. CEFTAZIDIME PENTAHYDRATE [Concomitant]
  11. AMIKACIN [Concomitant]
  12. VANCOMYCIN [Concomitant]
  13. ACETAMINOPHEN [Concomitant]
  14. FASTURTEC (RASBURICASE) [Concomitant]
  15. ZOVIRAX [Concomitant]
  16. HEPARIN [Concomitant]
  17. ARTIFICIAL TEARS [Concomitant]
  18. CHIBROCADRON (DEXAMETHASONE SODIUM PHOSPHATE) [Concomitant]
  19. POLARAMINE [Concomitant]
  20. PLITICAN (ALIZAPRIDE HYDROCHLORIDE) [Concomitant]
  21. NICARDIPINE HCL [Concomitant]
  22. DAUNOXOME [Concomitant]
  23. ONDANSETRON HYDROCHLORIDE [Concomitant]

REACTIONS (3)
  - BLINDNESS [None]
  - DYSPEPSIA [None]
  - FEBRILE CONVULSION [None]
